FAERS Safety Report 5026153-2 (Version None)
Quarter: 2006Q2

REPORT INFORMATION
  Report Type: 
  Country: None (occurrence: None)
  Receive Date: 20060608
  Receipt Date: 19960723
  Transmission Date: 20061013
  Serious: Yes (Hospitalization)
  Sender: FDA-Public Use
  Company Number: 96-07-0351

PATIENT
  Sex: Female
  Weight: 50 kg

DRUGS (3)
  1. ETHYOL [Suspect]
     Indication: ADVERSE DRUG REACTION
     Dosage: INTRAVENOUS
     Route: 042
     Dates: start: 19960619, end: 19960619
  2. CYCLOPHOSPHAMIDE [Suspect]
     Indication: OVARIAN CANCER
     Dosage: INTRAVENOUS
     Route: 042
     Dates: start: 19960619, end: 19960619
  3. CISPLATIN [Suspect]
     Dosage: INTRAVENOUS
     Route: 042
     Dates: start: 19960619, end: 19960619

REACTIONS (5)
  - ATRIAL FIBRILLATION [None]
  - HYPERHIDROSIS [None]
  - HYPERTENSION [None]
  - PALLOR [None]
  - SYNCOPE [None]
